FAERS Safety Report 6733644-2 (Version None)
Quarter: 2010Q2

REPORT INFORMATION
  Report Type: 
  Country: None (occurrence: None)
  Receive Date: 20100518
  Receipt Date: 20100505
  Transmission Date: 20101027
  Serious: Yes (Hospitalization, Other)
  Sender: FDA-Public Use
  Company Number: 7003799

PATIENT
  Age: 45 Year
  Sex: Female
  Weight: 65 kg

DRUGS (10)
  1. REBIF [Suspect]
     Indication: RELAPSING-REMITTING MULTIPLE SCLEROSIS
     Dosage: 44 MCG, SUBCUTANEOUS
     Route: 058
     Dates: start: 20081101, end: 20100225
  2. REBIF [Suspect]
     Indication: RELAPSING-REMITTING MULTIPLE SCLEROSIS
     Dosage: 44 MCG, SUBCUTANEOUS
     Route: 058
     Dates: start: 20100302, end: 20100302
  3. NASONEX [Concomitant]
  4. BENADRYL [Concomitant]
  5. OSCAL-D (OSCAL) [Concomitant]
  6. MULTIVITAMIN [Concomitant]
  7. FISH OIL OMEGA-3 (FISH OIL) [Concomitant]
  8. B-COMPLEX (VITAMINUM B-COMPLEX) [Concomitant]
  9. CITRACAL (CALCIUM CITRATE) [Concomitant]
  10. BACLOFEN [Concomitant]

REACTIONS (5)
  - ANAEMIA [None]
  - DEEP VEIN THROMBOSIS [None]
  - OSTEOPENIA [None]
  - POST PROCEDURAL COMPLICATION [None]
  - VAGINAL HAEMORRHAGE [None]
